FAERS Safety Report 15759116 (Version 1)
Quarter: 2018Q4

REPORT INFORMATION
  Report Type: Report from Study
  Country: DE (occurrence: DE)
  Receive Date: 20181226
  Receipt Date: 20181226
  Transmission Date: 20190205
  Serious: Yes (Other)
  Sender: FDA-Public Use
  Company Number: DE-ROCHE-2231177

PATIENT
  Age: 53 Year
  Sex: Male
  Weight: 64 kg

DRUGS (9)
  1. ENTECAVIR. [Concomitant]
     Active Substance: ENTECAVIR
     Indication: PRODUCT USED FOR UNKNOWN INDICATION
     Route: 065
     Dates: start: 20150327, end: 20150910
  2. EXVIERA [Suspect]
     Active Substance: DASABUVIR
     Indication: CHRONIC HEPATITIS C
     Dosage: ON 31/MAY/2015, RECEIVED MOST RECENT DOSE OF DASABUVIR.
     Route: 048
     Dates: start: 20150309
  3. HUMALOG [Concomitant]
     Active Substance: INSULIN LISPRO
     Indication: PRODUCT USED FOR UNKNOWN INDICATION
     Dosage: AS REQUIRED
     Route: 065
     Dates: start: 20150320
  4. RIBAVIRIN. [Suspect]
     Active Substance: RIBAVIRIN
     Indication: CHRONIC HEPATITIS C
     Dosage: ON 31/MAY/2015, RECEIVED MOST RECENT DOSE OF RIBAVIRIN.
     Route: 048
     Dates: start: 20150309
  5. PROPRANOLOL [Concomitant]
     Active Substance: PROPRANOLOL HYDROCHLORIDE
     Indication: PRODUCT USED FOR UNKNOWN INDICATION
     Route: 065
  6. OMEPRAZOL [Concomitant]
     Active Substance: OMEPRAZOLE
     Indication: CHRONIC HEPATITIS C
     Route: 065
  7. VIREAD [Concomitant]
     Active Substance: TENOFOVIR DISOPROXIL FUMARATE
     Indication: PRODUCT USED FOR UNKNOWN INDICATION
     Route: 065
     Dates: start: 20150911
  8. CIPROFLOXACIN. [Concomitant]
     Active Substance: CIPROFLOXACIN
     Indication: PRODUCT USED FOR UNKNOWN INDICATION
     Dosage: 1000 MG/D
     Route: 065
     Dates: start: 20150327, end: 20150331
  9. VIEKIRAX [Suspect]
     Active Substance: OMBITASVIR\PARITAPREVIR\RITONAVIR
     Indication: CHRONIC HEPATITIS C
     Dosage: ON 31/MAY/2015, RECEIVED MOST RECENT DOSE OF OMBITASVIR/PARITAPREVIR/RITONAVIR.
     Route: 048
     Dates: start: 20150309

REACTIONS (6)
  - Fatigue [Recovering/Resolving]
  - Diarrhoea [Recovered/Resolved]
  - C-reactive protein increased [Unknown]
  - Syncope [Recovering/Resolving]
  - Hepatitis B reactivation [Unknown]
  - Bone pain [Recovered/Resolved]

NARRATIVE: CASE EVENT DATE: 20150324
